FAERS Safety Report 7585568-9 (Version None)
Quarter: 2011Q2

REPORT INFORMATION
  Report Type: 
  Country: None (occurrence: None)
  Receive Date: 20110624
  Receipt Date: 20110609
  Transmission Date: 20111010
  Serious: Yes (Other)
  Sender: FDA-Public Use
  Company Number: 2011MA006983

PATIENT
  Age: 10 Year
  Sex: Female
  Weight: 35 kg

DRUGS (2)
  1. LAMOTRIGINE [Concomitant]
  2. LEVETIRACETAM [Suspect]
     Indication: CONVULSION
     Dosage: 1500 MG; QD;

REACTIONS (8)
  - ABNORMAL BEHAVIOUR [None]
  - POSTURE ABNORMAL [None]
  - ABASIA [None]
  - GAIT DISTURBANCE [None]
  - ENCEPHALOPATHY [None]
  - PARTIAL SEIZURES [None]
  - MYOCLONUS [None]
  - CONDITION AGGRAVATED [None]
